FAERS Safety Report 8362515 (Version 2)
Quarter: 2015Q3

REPORT INFORMATION
  Report Type: Report from Study
  Country: US (occurrence: US)
  Receive Date: 20120130
  Receipt Date: 20150704
  Transmission Date: 20151125
  Serious: Yes (Death)
  Sender: FDA-Public Use
  Company Number: US-ROCHE-1034555

PATIENT
  Sex: Female
  Weight: 95 kg

DRUGS (9)
  1. TEMODAR [Concomitant]
     Active Substance: TEMOZOLOMIDE
  2. TYLENOL ELIXIR [Concomitant]
     Active Substance: ACETAMINOPHEN
     Route: 048
  3. ALOXI [Concomitant]
     Active Substance: PALONOSETRON HYDROCHLORIDE
     Route: 042
  4. IRINOTECAN [Concomitant]
     Active Substance: IRINOTECAN
     Dosage: 125 MG/M2
     Route: 042
  5. DECADRON [Concomitant]
     Active Substance: DEXAMETHASONE
     Route: 042
  6. BENADRYL [Concomitant]
     Active Substance: DIPHENHYDRAMINE HYDROCHLORIDE
     Route: 042
  7. CAMPTOSAR [Concomitant]
     Active Substance: IRINOTECAN HYDROCHLORIDE
  8. ATROPIN [Concomitant]
     Route: 058
  9. AVASTIN [Suspect]
     Active Substance: BEVACIZUMAB
     Indication: BRAIN NEOPLASM MALIGNANT
     Dosage: THERAPY DATES: 05/DEC/2007, 19/DEC/2007, 02/JAN/2008, 16/JAN/2008?10 MG/KG
     Route: 042
     Dates: start: 20071121

REACTIONS (3)
  - Hypoaesthesia [Unknown]
  - Death [Fatal]
  - Mobility decreased [Unknown]
